FAERS Safety Report 25977679 (Version 1)
Quarter: 2025Q4

REPORT INFORMATION
  Report Type: Report from Study
  Country: US (occurrence: US)
  Receive Date: 20251030
  Receipt Date: 20251030
  Transmission Date: 20260118
  Serious: Yes (Other)
  Sender: ROCHE
  Company Number: US-ROCHE-10000420860

PATIENT
  Age: 68 Year
  Sex: Male

DRUGS (2)
  1. ATEZOLIZUMAB [Suspect]
     Active Substance: ATEZOLIZUMAB
     Indication: Brain neoplasm malignant
     Route: 065
  2. CABOMETYX [Suspect]
     Active Substance: CABOZANTINIB S-MALATE
     Indication: Brain neoplasm malignant
     Route: 065

REACTIONS (3)
  - Immune-mediated enterocolitis [Unknown]
  - White blood cell count decreased [Recovered/Resolved]
  - Off label use [Unknown]
